FAERS Safety Report 24772665 (Version 1)
Quarter: 2024Q4

REPORT INFORMATION
  Report Type: Spontaneous
  Country: GB (occurrence: GB)
  Receive Date: 20241225
  Receipt Date: 20241225
  Transmission Date: 20250114
  Serious: Yes (Other)
  Sender: AUROBINDO
  Company Number: GB-MHRA-TPP31068340C12851059YC1732881348487

PATIENT
  Age: 67 Year
  Sex: Male
  Weight: 63 kg

DRUGS (16)
  1. PREGABALIN [Suspect]
     Active Substance: PREGABALIN
     Indication: Product used for unknown indication
     Dosage: 25 MILLIGRAM, TWO TIMES A DAY (TAKE 1 TWICE DAILY OPEN CAPSULE AND MIX CONTENTS WITH 15ML OF WATER B
     Dates: start: 20241119
  2. DEXAMETHASONE [Concomitant]
     Active Substance: DEXAMETHASONE
     Indication: Ill-defined disorder
     Dosage: 5 MILLIGRAM, AS DIRECTED
     Route: 065
     Dates: start: 20241104
  3. ATROPINE SULFATE [Concomitant]
     Active Substance: ATROPINE SULFATE
     Indication: Ill-defined disorder
     Dosage: UNK UNK, FOUR TIMES/DAY (1-2 DROPS WHEN REQUIRED UPTO 4 TIMES /DAY THROUGH PEG TUBE)
     Route: 065
     Dates: start: 20241128, end: 20241129
  4. BUPRENORPHINE [Concomitant]
     Active Substance: BUPRENORPHINE
     Indication: Ill-defined disorder
     Dosage: UNK UNK, EVERY WEEK (APPLY ONE WEEKLY)
     Route: 065
     Dates: start: 20241128
  5. MORPHINE SULFATE [Concomitant]
     Active Substance: MORPHINE SULFATE
     Indication: Ill-defined disorder
     Dosage: UNK UNK, AS DIRECTED (1.25ML - 2.5ML UP TO FOUR HOURLY VIA NG TUBE AS DIRECTED BY ONCOLOGY)
     Route: 065
     Dates: start: 20240415
  6. ACETAMINOPHEN [Concomitant]
     Active Substance: ACETAMINOPHEN
     Indication: Ill-defined disorder
     Dosage: UNK UNK, FOUR TIMES/DAY (5-10ML UP TO FOUR TIMES A DAY AS NEEDED FOR PAIN.)
     Route: 065
     Dates: start: 20240319
  7. DOCUSATE SODIUM [Concomitant]
     Active Substance: DOCUSATE SODIUM
     Indication: Ill-defined disorder
     Dosage: 20 MILLIGRAM (20ML BD PRN)
     Route: 065
     Dates: start: 20241011
  8. DOCUSATE SODIUM [Concomitant]
     Active Substance: DOCUSATE SODIUM
     Dosage: 20 MILLIGRAM, AS DIRECTED (~20ML BD VIA NG TUBE AS DIRECTED  )
     Route: 065
     Dates: start: 20231124
  9. SODIUM PICOSULFATE [Concomitant]
     Active Substance: SODIUM PICOSULFATE
     Indication: Ill-defined disorder
     Dosage: UNK (5-10 ML  VIA RIG  AS ADV BY HOSPICE TEAM)
     Route: 065
     Dates: start: 20241128, end: 20241129
  10. Ensure plus fibre [Concomitant]
     Indication: Ill-defined disorder
     Dosage: 2 DOSAGE FORM, DAILY
     Route: 065
     Dates: start: 20230907
  11. Nutricrem [Concomitant]
     Indication: Ill-defined disorder
     Dosage: 1 DOSAGE FORM, DAILY
     Route: 065
     Dates: start: 20230907
  12. POLYETHYLENE GLYCOLS [Concomitant]
     Active Substance: POLYETHYLENE GLYCOLS
     Indication: Ill-defined disorder
     Dosage: 1 DOSAGE FORM, TWO TIMES A DAY
     Route: 065
     Dates: start: 20231124
  13. MEDICAL FOOD [Concomitant]
     Active Substance: MEDICAL FOOD
     Indication: Ill-defined disorder
     Dosage: UNK UNK, AS DIRECTED (USE AS DIRECTED VIA NG TUBE)
     Route: 065
     Dates: start: 20231124
  14. OMEPRAZOLE [Concomitant]
     Active Substance: OMEPRAZOLE
     Indication: Ill-defined disorder
     Dosage: UNK UNK, AS DIRECTED (TAKE ONE DAILY VIA NG TUBE AS DIRECTED)
     Route: 065
     Dates: start: 20231124
  15. Jevity [Concomitant]
     Indication: Ill-defined disorder
     Dosage: 1500 MILLILITER
     Route: 065
     Dates: start: 20240319
  16. PENTOXIFYLLINE [Concomitant]
     Active Substance: PENTOXIFYLLINE
     Indication: Ill-defined disorder
     Dosage: 1 DOSAGE FORM, TWO TIMES A DAY
     Route: 065
     Dates: start: 20240501

REACTIONS (2)
  - Swelling face [Recovered/Resolved]
  - Swollen tongue [Recovered/Resolved]
